FAERS Safety Report 5034779-5 (Version None)
Quarter: 2006Q2

REPORT INFORMATION
  Report Type: 
  Country: None (occurrence: None)
  Receive Date: 20060509
  Receipt Date: 20060117
  Transmission Date: 20061013
  Serious: Yes (Hospitalization)
  Sender: FDA-Public Use
  Company Number: US200601002944

PATIENT
  Age: 57 Year
  Sex: Female

DRUGS (6)
  1. PROZAC WEEKLY [Suspect]
     Indication: DEPRESSION
     Dosage: 90 MG, WEELY (1/W)
     Dates: start: 20040101
  2. PROZAC [Suspect]
     Indication: DEPRESSION
     Dosage: 20 MG, 2/D
  3. NEXIUM [Concomitant]
  4. PHENOBARBITAL TAB [Concomitant]
  5. DILANTIN [Concomitant]
  6. PROZAC [Concomitant]

REACTIONS (3)
  - ANTICONVULSANT DRUG LEVEL BELOW THERAPEUTIC [None]
  - CONVULSION [None]
  - DRUG INEFFECTIVE [None]
